FAERS Safety Report 17447419 (Version 1)
Quarter: 2020Q1

REPORT INFORMATION
  Report Type: Spontaneous
  Country: CN (occurrence: CN)
  Receive Date: 20200221
  Receipt Date: 20200221
  Transmission Date: 20200409
  Serious: No
  Sender: FDA-Public Use
  Company Number: CN-B.BRAUN MEDICAL INC.-2080782

PATIENT
  Age: 52 Year
  Sex: Female
  Weight: 58 kg

DRUGS (2)
  1. MIDAZOLAM HYDROCHLORIDE. [Concomitant]
     Active Substance: MIDAZOLAM HYDROCHLORIDE
     Route: 042
     Dates: start: 20191212, end: 20191212
  2. HESPAN [Suspect]
     Active Substance: HETASTARCH\SODIUM CHLORIDE
     Indication: FLUID REPLACEMENT
     Route: 041
     Dates: start: 20191212, end: 20191212

REACTIONS (1)
  - Anaphylactic reaction [None]
